FAERS Safety Report 17385452 (Version 1)
Quarter: 2020Q1

REPORT INFORMATION
  Report Type: Spontaneous
  Country: US (occurrence: US)
  Receive Date: 20200206
  Receipt Date: 20200206
  Transmission Date: 20200409
  Serious: Yes (Hospitalization)
  Sender: FDA-Public Use
  Company Number: US-ABBVIE-19K-163-2902197-00

PATIENT
  Age: 17 Year
  Sex: Female
  Weight: 49.94 kg

DRUGS (4)
  1. NORTREL 1/35 [Concomitant]
     Indication: PRODUCT USED FOR UNKNOWN INDICATION
  2. HUMIRA [Suspect]
     Active Substance: ADALIMUMAB
     Route: 058
  3. OXYBUTYNIN. [Concomitant]
     Active Substance: OXYBUTYNIN CHLORIDE
     Indication: PRODUCT USED FOR UNKNOWN INDICATION
  4. HUMIRA [Suspect]
     Active Substance: ADALIMUMAB
     Indication: BEHCET^S SYNDROME
     Route: 058
     Dates: start: 2018

REACTIONS (7)
  - Off label use [Not Recovered/Not Resolved]
  - Appendicitis [Recovered/Resolved]
  - Injection site pain [Not Recovered/Not Resolved]
  - Product packaging quantity issue [Unknown]
  - Incorrect dose administered [Unknown]
  - Product administration error [Unknown]
  - Wrong technique in product usage process [Unknown]

NARRATIVE: CASE EVENT DATE: 201801
